FAERS Safety Report 6724994 (Version 3)
Quarter: 2014Q1

REPORT INFORMATION
  Report Type: Spontaneous
  Country: ES (occurrence: ES)
  Receive Date: 20080812
  Receipt Date: 20140108
  Transmission Date: 20141002
  Serious: Yes (Other)
  Sender: FDA-Public Use
  Company Number: ES-ROCHE-579042

PATIENT
  Age: 38 Year
  Sex: Male

DRUGS (5)
  1. ENFUVIRTIDE [Suspect]
     Indication: ANTIRETROVIRAL THERAPY
     Route: 058
  2. SAQUINAVIR [Suspect]
     Indication: ANTIRETROVIRAL THERAPY
     Route: 058
  3. LOPINAVIR/RITONAVIR [Suspect]
     Indication: ANTIRETROVIRAL THERAPY
     Route: 058
  4. TENOFOVIR [Suspect]
     Indication: ANTIRETROVIRAL THERAPY
     Route: 058
  5. SULFAMETHOXAZOLE/TRIMETHOPRIM [Concomitant]
     Indication: ANTIFUNGAL PROPHYLAXIS

REACTIONS (2)
  - Osteomyelitis [Recovered/Resolved]
  - Extradural abscess [Recovered/Resolved]
